FAERS Safety Report 10197389 (Version 2)
Quarter: 2014Q2

REPORT INFORMATION
  Report Type: Spontaneous
  Country: US (occurrence: US)
  Receive Date: 20140527
  Receipt Date: 20140616
  Transmission Date: 20141212
  Serious: Yes (Hospitalization, Other)
  Sender: FDA-Public Use
  Company Number: US-BAXTER-2014BAX026140

PATIENT
  Age: 51 Year
  Sex: Female

DRUGS (3)
  1. DIANEAL LOW CALCIUM [Suspect]
     Indication: PERITONEAL DIALYSIS
     Route: 033
     Dates: start: 201309, end: 20140512
  2. DIANEAL LOW CALCIUM [Suspect]
     Route: 033
     Dates: start: 20140531
  3. DIANEAL LOW CALCIUM (ULTRABAG) [Suspect]
     Indication: PERITONEAL DIALYSIS
     Route: 033
     Dates: start: 20130512, end: 20140531

REACTIONS (3)
  - Cardiac procedure complication [Recovering/Resolving]
  - Myocardial infarction [Recovering/Resolving]
  - Pneumonia [Recovered/Resolved]
